FAERS Safety Report 9964470 (Version 2)
Quarter: 2014Q1

REPORT INFORMATION
  Report Type: Spontaneous
  Country: US (occurrence: US)
  Receive Date: 20140305
  Receipt Date: 20140328
  Transmission Date: 20141002
  Serious: Yes (Other)
  Sender: FDA-Public Use
  Company Number: US-TEVA-466725USA

PATIENT
  Age: 30 Year
  Sex: Female
  Weight: 85.35 kg

DRUGS (1)
  1. PARAGARD 380A [Suspect]
     Indication: CONTRACEPTION
     Route: 015
     Dates: start: 20121231, end: 20140228

REACTIONS (7)
  - Intra-abdominal haemorrhage [Recovered/Resolved]
  - Ectopic pregnancy with contraceptive device [Recovered/Resolved]
  - Drug ineffective [Recovered/Resolved]
  - Device dislocation [Recovered/Resolved]
  - Menstruation irregular [Recovered/Resolved]
  - Menstruation delayed [Unknown]
  - Abdominal pain lower [Recovering/Resolving]
